FAERS Safety Report 13092589 (Version 1)
Quarter: 2017Q1

REPORT INFORMATION
  Report Type: Spontaneous
  Country: US (occurrence: US)
  Receive Date: 20170106
  Receipt Date: 20170106
  Transmission Date: 20170428
  Serious: No
  Sender: FDA-Public Use
  Company Number: US-JNJFOC-20161129872

PATIENT
  Age: 70 Year
  Sex: Female
  Weight: 54.43 kg

DRUGS (8)
  1. AMBIEN [Concomitant]
     Active Substance: ZOLPIDEM TARTRATE
     Indication: SLEEP DISORDER THERAPY
     Dosage: 3/4 A NIGHT; 1/2 A NIGHT, 10 YEARS
     Route: 065
  2. BENADRYL [Suspect]
     Active Substance: DIPHENHYDRAMINE HYDROCHLORIDE
     Indication: MULTIPLE ALLERGIES
     Dosage: 1 LIQUID GEL PER DAY, FOR THE PAST TWO WEEKS (CURRENT USE)
     Route: 048
  3. BENADRYL [Suspect]
     Active Substance: DIPHENHYDRAMINE HYDROCHLORIDE
     Indication: MULTIPLE ALLERGIES
     Dosage: 1 LIQUID GEL PER DAY (PAST USE)
     Route: 048
  4. BENADRYL [Suspect]
     Active Substance: DIPHENHYDRAMINE HYDROCHLORIDE
     Indication: PARANASAL SINUS DISCOMFORT
     Dosage: 1 LIQUID GEL PER DAY, FOR THE PAST TWO WEEKS (CURRENT USE)
     Route: 048
  5. TYLENOL EXTRA STRENGTH [Suspect]
     Active Substance: ACETAMINOPHEN
     Route: 048
  6. BENADRYL [Suspect]
     Active Substance: DIPHENHYDRAMINE HYDROCHLORIDE
     Indication: PARANASAL SINUS DISCOMFORT
     Dosage: 1 LIQUID GEL PER DAY (PAST USE)
     Route: 048
  7. TYLENOL EXTRA STRENGTH [Suspect]
     Active Substance: ACETAMINOPHEN
     Indication: PRODUCT USED FOR UNKNOWN INDICATION
     Dosage: 1, 1 TIME WHEN NEEDED
     Route: 048
  8. LIPITOR [Concomitant]
     Active Substance: ATORVASTATIN CALCIUM
     Indication: BLOOD CHOLESTEROL INCREASED
     Route: 065

REACTIONS (1)
  - Blood pressure increased [Not Recovered/Not Resolved]

NARRATIVE: CASE EVENT DATE: 20161126
